FAERS Safety Report 5171594-6 (Version None)
Quarter: 2006Q4

REPORT INFORMATION
  Report Type: 
  Country: None (occurrence: None)
  Receive Date: 20061213
  Receipt Date: 20061201
  Transmission Date: 20070319
  Serious: Yes (Hospitalization)
  Sender: FDA-Public Use
  Company Number: FR-ROCHE-473807

PATIENT
  Age: 5 Year
  Weight: 2.9 kg

DRUGS (14)
  1. INVIRASE [Suspect]
     Indication: SYSTEMIC ANTIVIRAL TREATMENT
     Dosage: FROM THE 24TH WEEK OF PREGNANCY.
     Dates: start: 20001020
  2. SUSTIVA [Suspect]
     Indication: SYSTEMIC ANTIVIRAL TREATMENT
     Dosage: UNTIL THE 7TH WEEK OF PREGNANCY.
     Dates: end: 20000623
  3. VIRAMUNE [Suspect]
     Indication: SYSTEMIC ANTIVIRAL TREATMENT
     Dosage: FROM THE 7TH WEEK OF PREGNANCY.
     Dates: start: 20000623
  4. NORVIR [Suspect]
     Indication: SYSTEMIC ANTIVIRAL TREATMENT
     Dosage: FROM THE 7TH WEEK OF PREGNANCY.
     Dates: start: 20060623
  5. VIDEX [Suspect]
     Indication: SYSTEMIC ANTIVIRAL TREATMENT
  6. RETROVIR [Concomitant]
     Indication: SYSTEMIC ANTIVIRAL TREATMENT
     Dosage: AT DELIVERY. FORM: INFUSION.
     Dates: start: 20010131
  7. PREVISCAN [Concomitant]
     Dosage: DURING PREGNANCY.
  8. FRAXIPARINE [Concomitant]
     Dosage: DURING PREGNANCY.
  9. BACTRIM [Concomitant]
     Dosage: DURING PREGNANCY.
  10. DEPAKENE [Concomitant]
     Dosage: DURING PREGNANCY.
  11. SPECIAFOLDINE [Concomitant]
     Dosage: DURING PREGNANCY.
  12. VOGALENE [Concomitant]
     Dosage: DURING PREGNANCY.
  13. OXACILLIN [Concomitant]
     Dosage: DURING PREGNANCY.
  14. VIRACEPT [Concomitant]
     Indication: SYSTEMIC ANTIVIRAL TREATMENT
     Dosage: UNTIL THE 7TH WEEK OF PREGNANCY.
     Dates: end: 20000623

REACTIONS (9)
  - ABDOMINAL DISTENSION [None]
  - DRUG EXPOSURE DURING PREGNANCY [None]
  - HEPATOSPLENOMEGALY [None]
  - HYPERLACTACIDAEMIA [None]
  - HYPERTRIGLYCERIDAEMIA [None]
  - NEONATAL DISORDER [None]
  - NEUTROPENIA [None]
  - NEUTROPENIA NEONATAL [None]
  - PREGNANCY [None]
